FAERS Safety Report 14909677 (Version 2)
Quarter: 2018Q2

REPORT INFORMATION
  Report Type: Spontaneous
  Country: US (occurrence: US)
  Receive Date: 20180517
  Receipt Date: 20180529
  Transmission Date: 20180711
  Serious: Yes (Other)
  Sender: FDA-Public Use
  Company Number: US-JNJFOC-20180514474

PATIENT
  Sex: Male

DRUGS (1)
  1. XARELTO [Suspect]
     Active Substance: RIVAROXABAN
     Indication: PRODUCT USED FOR UNKNOWN INDICATION
     Dosage: TAKING FOR SIX YEARS
     Route: 048

REACTIONS (2)
  - Gastric haemorrhage [Not Recovered/Not Resolved]
  - Apparent death [Unknown]

NARRATIVE: CASE EVENT DATE: 2011
